FAERS Safety Report 25548451 (Version 2)
Quarter: 2025Q3

REPORT INFORMATION
  Report Type: Spontaneous
  Country: US (occurrence: US)
  Receive Date: 20250714
  Receipt Date: 20250727
  Transmission Date: 20251020
  Serious: No
  Sender: DR REDDYS
  Company Number: US-DRL-USA-USA/2025/06/008218

PATIENT
  Age: 60 Year
  Sex: Male
  Weight: 79.38 kg

DRUGS (1)
  1. FEXOFENADINE HYDROCHLORIDE [Suspect]
     Active Substance: FEXOFENADINE HYDROCHLORIDE
     Indication: Hypersensitivity
     Dosage: 30 COUNT
     Route: 065
     Dates: start: 20250521

REACTIONS (1)
  - Drug ineffective [Unknown]
